FAERS Safety Report 18905046 (Version 1)
Quarter: 2021Q1

REPORT INFORMATION
  Report Type: Spontaneous
  Country: US (occurrence: US)
  Receive Date: 20210217
  Receipt Date: 20210217
  Transmission Date: 20210420
  Serious: Yes (Hospitalization)
  Sender: FDA-Public Use
  Company Number: US-SA-2021SA047212

PATIENT
  Sex: Female

DRUGS (1)
  1. TUBERSOL [Suspect]
     Active Substance: TUBERCULIN PURIFIED PROTEIN DERIVATIVE
     Indication: TUBERCULIN TEST
     Route: 065

REACTIONS (7)
  - Illness [Unknown]
  - Hospitalisation [Unknown]
  - Adverse event [Unknown]
  - Dyspnoea [Unknown]
  - Joint swelling [Unknown]
  - Rash pruritic [Unknown]
  - Rash [Unknown]
